FAERS Safety Report 4569052-2 (Version None)
Quarter: 2005Q1

REPORT INFORMATION
  Report Type: 
  Country: None (occurrence: None)
  Receive Date: 20050203
  Receipt Date: 20040715
  Transmission Date: 20050727
  Serious: Yes (Life-Threatening, Hospitalization, Disabling, Congenital Anomaly, Other)
  Sender: FDA-Public Use
  Company Number: 200415406US

PATIENT
  Sex: Female

DRUGS (1)
  1. LOVENOX [Suspect]
     Indication: DEEP VEIN THROMBOSIS
     Dosage: DOSE: UNK
     Route: 065

REACTIONS (14)
  - ACTIVATED PARTIAL THROMBOPLASTIN TIME PROLONGED [None]
  - APGAR SCORE LOW [None]
  - CEREBRAL INFARCTION [None]
  - DRUG EXPOSURE DURING PREGNANCY [None]
  - EYE HAEMORRHAGE [None]
  - HAEMORRHAGE NEONATAL [None]
  - HEARING IMPAIRED [None]
  - INTRAVENTRICULAR HAEMORRHAGE NEONATAL [None]
  - NEONATAL DISORDER [None]
  - PROTHROMBIN TIME PROLONGED [None]
  - RETINAL HAEMORRHAGE [None]
  - SUBARACHNOID HAEMORRHAGE NEONATAL [None]
  - THROMBOCYTOPENIA NEONATAL [None]
  - VISUAL DISTURBANCE [None]
